FAERS Safety Report 24913161 (Version 1)
Quarter: 2025Q1

REPORT INFORMATION
  Report Type: Spontaneous
  Country: CN (occurrence: CN)
  Receive Date: 20250201
  Receipt Date: 20250201
  Transmission Date: 20250408
  Serious: Yes (Other)
  Sender: BEIGENE
  Company Number: CN-BEIGENE-BGN-2025-001274

PATIENT
  Age: 29 Year
  Weight: 69 kg

DRUGS (13)
  1. TISLELIZUMAB [Suspect]
     Active Substance: TISLELIZUMAB
     Indication: T-cell lymphoma
  2. TISLELIZUMAB [Suspect]
     Active Substance: TISLELIZUMAB
     Route: 041
  3. TISLELIZUMAB [Suspect]
     Active Substance: TISLELIZUMAB
     Route: 041
  4. TISLELIZUMAB [Suspect]
     Active Substance: TISLELIZUMAB
  5. PEGASPARGASE [Concomitant]
     Active Substance: PEGASPARGASE
     Indication: T-cell lymphoma
     Route: 041
  6. PEGASPARGASE [Concomitant]
     Active Substance: PEGASPARGASE
  7. OXALIPLATIN [Concomitant]
     Active Substance: OXALIPLATIN
     Indication: T-cell lymphoma
     Route: 041
  8. OXALIPLATIN [Concomitant]
     Active Substance: OXALIPLATIN
  9. GEMCITABINE HYDROCHLORIDE [Concomitant]
     Active Substance: GEMCITABINE HYDROCHLORIDE
     Indication: T-cell lymphoma
     Route: 041
  10. GEMCITABINE HYDROCHLORIDE [Concomitant]
     Active Substance: GEMCITABINE HYDROCHLORIDE
  11. MITOXANTRONE HYDROCHLORIDE [Concomitant]
     Active Substance: MITOXANTRONE HYDROCHLORIDE
     Indication: T-cell lymphoma
     Route: 041
  12. MITOXANTRONE HYDROCHLORIDE [Concomitant]
     Active Substance: MITOXANTRONE HYDROCHLORIDE
  13. TUCIDINOSTAT [Concomitant]
     Active Substance: TUCIDINOSTAT
     Indication: T-cell lymphoma

REACTIONS (1)
  - Full blood count decreased [Recovered/Resolved]
